FAERS Safety Report 10306356 (Version 5)
Quarter: 2014Q3

REPORT INFORMATION
  Report Type: Report from Study
  Country: FR (occurrence: FR)
  Receive Date: 20140715
  Receipt Date: 20140821
  Transmission Date: 20150326
  Serious: Yes (Other)
  Sender: FDA-Public Use
  Company Number: FR-EXELIXIS-XL18414004505

PATIENT
  Age: 79 Year
  Sex: Male
  Weight: 82 kg

DRUGS (5)
  1. RILMENIDINE [Concomitant]
     Active Substance: RILMENIDINE
  2. ZOPLICONE [Concomitant]
     Active Substance: ZOPICLONE
  3. XL184 [Suspect]
     Active Substance: CABOZANTINIB
     Indication: HEPATOCELLULAR CARCINOMA
     Dosage: 60 MG, QD
     Route: 048
     Dates: start: 20140617, end: 20140703
  4. FLUOCARIL [Concomitant]
  5. LODOZ [Concomitant]
     Active Substance: BISOPROLOL FUMARATE\HYDROCHLOROTHIAZIDE

REACTIONS (2)
  - Hypertension [Recovered/Resolved]
  - Aphasia [Recovered/Resolved]

NARRATIVE: CASE EVENT DATE: 20140704
